FAERS Safety Report 12357855 (Version 1)
Quarter: 2016Q2

REPORT INFORMATION
  Report Type: Spontaneous
  Country: CA (occurrence: CA)
  Receive Date: 20160512
  Receipt Date: 20160512
  Transmission Date: 20160815
  Serious: Yes (Death)
  Sender: FDA-Public Use
  Company Number: CA-009507513-1605CAN004907

PATIENT
  Age: 69 Year
  Sex: Female

DRUGS (1)
  1. ORGARAN [Suspect]
     Active Substance: DANAPAROID SODIUM
     Indication: PRODUCT USED FOR UNKNOWN INDICATION
     Dosage: 750 ANTI-XAUNIT/AMP 1250 UNIT/ML EVERY 1 DAY (150 IU)
     Route: 042

REACTIONS (3)
  - Pulmonary haemorrhage [Fatal]
  - Deep vein thrombosis [Fatal]
  - Pulmonary infarction [Fatal]
